FAERS Safety Report 4712220-7 (Version None)
Quarter: 2005Q3

REPORT INFORMATION
  Report Type: 
  Country: None (occurrence: None)
  Receive Date: 20050712
  Receipt Date: 20050606
  Transmission Date: 20060218
  Serious: Yes (Hospitalization)
  Sender: FDA-Public Use
  Company Number: PHEH2005US06350

PATIENT
  Age: 16 Year
  Sex: Male
  Weight: 84 kg

DRUGS (8)
  1. LEPONEX / CLOZARIL (CLOZAPINE) LEX+TAB [Suspect]
     Indication: SCHIZOPHRENIA, CATATONIC TYPE
     Dosage: 25 MG, QD
     Route: 048
     Dates: start: 20050502, end: 20050504
  2. LEPONEX / CLOZARIL (CLOZAPINE) LEX+TAB [Suspect]
     Dosage: 50MG QAM, 25MG Q8PM
     Route: 048
     Dates: start: 20050505, end: 20050508
  3. LEPONEX / CLOZARIL (CLOZAPINE) LEX+TAB [Suspect]
     Dosage: 75MG QAM, 50MG Q8PM
     Route: 048
     Dates: start: 20050509, end: 20050512
  4. LEPONEX / CLOZARIL (CLOZAPINE) LEX+TAB [Suspect]
     Dosage: 75MG QAM, 100MG QPM
     Route: 048
     Dates: start: 20050513, end: 20050516
  5. ABILIFY [Concomitant]
     Indication: PSYCHOTIC DISORDER
     Dosage: 10 MG, QD
     Route: 048
     Dates: start: 20050501, end: 20050516
  6. ABILIFY [Concomitant]
     Dosage: 10 MG, QPM
     Dates: start: 20050401, end: 20050509
  7. DULCOLAX [Concomitant]
     Indication: CONSTIPATION
     Dosage: 10 MG, QD
     Route: 048
     Dates: start: 20050510, end: 20050520
  8. COLACE [Concomitant]
     Indication: CONSTIPATION
     Dosage: 100 MG, QD
     Route: 048
     Dates: start: 20050401, end: 20050601

REACTIONS (13)
  - ATELECTASIS [None]
  - C-REACTIVE PROTEIN INCREASED [None]
  - CHILLS [None]
  - FEELING COLD [None]
  - HEART SOUNDS ABNORMAL [None]
  - MYOCARDITIS [None]
  - PNEUMONITIS [None]
  - PYREXIA [None]
  - RED BLOOD CELL SEDIMENTATION RATE INCREASED [None]
  - SEDATION [None]
  - SOMNOLENCE [None]
  - TROPONIN T INCREASED [None]
  - VIRAL INFECTION [None]
